FAERS Safety Report 5054535-1 (Version None)
Quarter: 2006Q3

REPORT INFORMATION
  Report Type: 
  Country: None (occurrence: None)
  Receive Date: 20060714
  Receipt Date: 20060703
  Transmission Date: 20061208
  Serious: Yes (Death)
  Sender: FDA-Public Use
  Company Number: 2006085055

PATIENT
  Age: 79 Year
  Sex: Male
  Weight: 77.5 kg

DRUGS (10)
  1. ATORVASTATIN CALCIUM [Suspect]
     Indication: MYOCARDIAL ISCHAEMIA
     Dosage: 40 MG (40 MG, 1 IN 1 D), ORAL
     Route: 048
     Dates: start: 20051101
  2. ASPIRIN [Concomitant]
  3. ATENOLOL [Concomitant]
  4. CLOPIDOGREL [Concomitant]
  5. DIGOXIN [Concomitant]
  6. FLOXACILLIN SODIUM [Concomitant]
  7. FUCIDINE CAP [Concomitant]
  8. FUROSEMIDE [Concomitant]
  9. ISOSORBIDE (ISOSORBIDE) [Concomitant]
  10. OMEPRAZOLE [Concomitant]

REACTIONS (6)
  - BLOOD CALCIUM DECREASED [None]
  - HAEMATOCRIT DECREASED [None]
  - HAEMOGLOBIN DECREASED [None]
  - HYPOTENSION [None]
  - RENAL FAILURE ACUTE [None]
  - RHABDOMYOLYSIS [None]
